FAERS Safety Report 6033017-4 (Version None)
Quarter: 2009Q1

REPORT INFORMATION
  Report Type: 
  Country: None (occurrence: None)
  Receive Date: 20090109
  Receipt Date: 20081202
  Transmission Date: 20090719
  Serious: Yes (Life-Threatening, Hospitalization, Other)
  Sender: FDA-Public Use
  Company Number: JP-PFIZER INC-2008069840

PATIENT

DRUGS (10)
  1. MIGLITOL TABLET [Suspect]
     Indication: TYPE 2 DIABETES MELLITUS
     Route: 048
     Dates: end: 20080807
  2. DORNER [Concomitant]
     Indication: ILL-DEFINED DISORDER
     Route: 048
  3. ANPLAG [Concomitant]
     Indication: ILL-DEFINED DISORDER
     Route: 048
  4. VALSARTAN [Concomitant]
     Indication: HYPERTENSION
     Route: 048
  5. TAKEPRON [Concomitant]
     Indication: GASTROOESOPHAGEAL REFLUX DISEASE
     Route: 048
  6. URINORM [Concomitant]
     Indication: RENAL FAILURE CHRONIC
     Route: 048
  7. ITOROL [Concomitant]
     Indication: CARDIAC FAILURE CONGESTIVE
     Route: 048
  8. TORSEMIDE [Concomitant]
     Indication: CARDIAC FAILURE CONGESTIVE
     Route: 048
  9. DIGOXIN [Concomitant]
     Indication: CARDIAC FAILURE CONGESTIVE
     Route: 048
  10. NOVOLIN R [Concomitant]
     Indication: DIABETES MELLITUS
     Route: 058

REACTIONS (2)
  - ACIDOSIS [None]
  - RENAL DISORDER [None]
